FAERS Safety Report 4475431-4 (Version None)
Quarter: 2004Q4

REPORT INFORMATION
  Report Type: 
  Country: None (occurrence: None)
  Receive Date: 20041014
  Receipt Date: 20041014
  Transmission Date: 20050328
  Serious: Yes (Death)
  Sender: FDA-Public Use
  Company Number: None

PATIENT
  Age: 44 Year
  Sex: Male
  Weight: 81.6475 kg

DRUGS (2)
  1. EFFEXOR [Suspect]
     Indication: DEPRESSION
  2. EFFEXOR [Suspect]
     Indication: PANIC ATTACK

REACTIONS (20)
  - ABNORMAL BEHAVIOUR [None]
  - AGITATION [None]
  - ANOREXIA [None]
  - ANXIETY [None]
  - COMPLETED SUICIDE [None]
  - CONDITION AGGRAVATED [None]
  - CRYING [None]
  - DECREASED INTEREST [None]
  - DRUG INEFFECTIVE [None]
  - FEAR [None]
  - FEELING ABNORMAL [None]
  - FEELING COLD [None]
  - GUN SHOT WOUND [None]
  - HYPERHIDROSIS [None]
  - IMPAIRED WORK ABILITY [None]
  - INSOMNIA [None]
  - NERVOUSNESS [None]
  - SUICIDAL IDEATION [None]
  - THINKING ABNORMAL [None]
  - WEIGHT DECREASED [None]
